FAERS Safety Report 6498940-5 (Version None)
Quarter: 2009Q4

REPORT INFORMATION
  Report Type: 
  Country: None (occurrence: None)
  Receive Date: 20091215
  Receipt Date: 20091214
  Transmission Date: 20100525
  Serious: Yes (Life-Threatening, Hospitalization)
  Sender: FDA-Public Use
  Company Number: BR-B.I. PHARMACEUTICALS,INC./RIDGEFIELD-2009-BR-01266BR

PATIENT
  Sex: Male

DRUGS (4)
  1. SPIRIVA [Suspect]
     Indication: EMPHYSEMA
     Dosage: 18 MCG
     Route: 055
     Dates: start: 20050101
  2. COMBIVENT [Concomitant]
  3. SERETIDE [Concomitant]
  4. FUROSEMIDE [Concomitant]

REACTIONS (5)
  - DRUG EFFECT DECREASED [None]
  - NOSOCOMIAL INFECTION [None]
  - RESPIRATORY ARREST [None]
  - SKIN EXFOLIATION [None]
  - WEIGHT DECREASED [None]
